FAERS Safety Report 10182012 (Version 3)
Quarter: 2014Q2

REPORT INFORMATION
  Report Type: Spontaneous
  Country: None (occurrence: GB)
  Receive Date: 20140519
  Receipt Date: 20140624
  Transmission Date: 20141212
  Serious: Yes (Hospitalization)
  Sender: FDA-Public Use
  Company Number: GB-TEVA-480044ISR

PATIENT
  Age: 4 Year
  Sex: Male

DRUGS (9)
  1. BUMETANIDE 1MG [Suspect]
     Dosage: 1500 MICROGRAM DAILY;
     Route: 048
  2. DIAZEPAM 2MG [Suspect]
     Dosage: 3 MILLIGRAM DAILY;
     Route: 048
  3. ACCORD METOPROLOL 50MG [Suspect]
     Dosage: 25 MILLIGRAM DAILY;
     Route: 048
  4. FLYNN PHARMA PHENYTOIN 50MG [Suspect]
     Dosage: 150 MILLIGRAM DAILY;
     Route: 048
  5. SANOFI SODIUM VALPROATE 100MG [Suspect]
     Dosage: 100 MILLIGRAM DAILY;
     Route: 048
  6. ALMUS SPIRONOLACTONE 25MG [Suspect]
     Dosage: 30 MILLIGRAM DAILY;
     Route: 048
  7. MYLAN BACLOFEN 10MG [Suspect]
     Dosage: 24 MILLIGRAM DAILY;
     Route: 048
  8. BRISTOL CAPTOPRIL [Suspect]
     Dosage: 60 MILLIGRAM DAILY; 25MG TABLET
     Route: 048
  9. ACCORD LEVETIRACETAM [Suspect]
     Dosage: 1000 MILLIGRAM DAILY;
     Route: 048

REACTIONS (1)
  - Blood ketone body increased [Unknown]
